FAERS Safety Report 22133855 (Version 1)
Quarter: 2023Q1

REPORT INFORMATION
  Report Type: Report from Study
  Country: MX (occurrence: None)
  Receive Date: 20230324
  Receipt Date: 20230324
  Transmission Date: 20230418
  Serious: Yes (Other)
  Sender: FDA-Public Use
  Company Number: MX-Merck Healthcare KGaA-9390882

PATIENT
  Sex: Female

DRUGS (1)
  1. REBIF [Suspect]
     Active Substance: INTERFERON BETA-1A
     Indication: Multiple sclerosis
     Route: 058
     Dates: start: 20220309

REACTIONS (3)
  - Neuromyelitis optica spectrum disorder [Unknown]
  - Neuromyelitis optica pseudo relapse [Recovering/Resolving]
  - Muscle contracture [Not Recovered/Not Resolved]
